FAERS Safety Report 8686593 (Version 2)
Quarter: 2013Q2

REPORT INFORMATION
  Report Type: Spontaneous
  Country: US (occurrence: GB)
  Receive Date: 20120726
  Receipt Date: 20130520
  Transmission Date: 20140414
  Serious: Yes (Other)
  Sender: FDA-Public Use
  Company Number: GB-009507513-1203GBR00020

PATIENT
  Age: 5 Year
  Sex: Male
  Weight: 17 kg

DRUGS (3)
  1. SINGULAIR [Suspect]
     Indication: ASTHMA
     Dosage: 4 MG, UNK
     Route: 048
     Dates: start: 2010, end: 2011
  2. LEVETIRACETAM [Concomitant]
     Indication: EPILEPSY
     Dosage: 340 MG, BID
  3. VALPROATE SODIUM [Concomitant]
     Indication: EPILEPSY
     Dosage: 200 MG, BID
     Dates: end: 201202

REACTIONS (1)
  - Convulsion [Not Recovered/Not Resolved]
